FAERS Safety Report 10706428 (Version 2)
Quarter: 2015Q1

REPORT INFORMATION
  Report Type: Spontaneous
  Country: CH (occurrence: None)
  Receive Date: 20150109
  Receipt Date: 20150115
  Transmission Date: 20150721
  Serious: Yes (Other)
  Sender: FDA-Public Use
  Company Number: 8004298

PATIENT
  Age: 73 Year
  Sex: Female

DRUGS (3)
  1. EUTHYROX [Suspect]
     Active Substance: LEVOTHYROXINE SODIUM
     Indication: HYPOTHYROIDISM
     Dosage: THREE YEARS AGO (50 MCG, 30 MINUTES BEFORE BREAKFAST)
     Route: 048
  2. IBANDRONATE SODIUM. [Suspect]
     Active Substance: IBANDRONATE SODIUM
     Indication: PRODUCT USED FOR UNKNOWN INDICATION
     Dosage: (1 IN 3 M)
     Route: 048
     Dates: end: 201409
  3. VITAMIN D3 [Suspect]
     Active Substance: CHOLECALCIFEROL
     Indication: PRODUCT USED FOR UNKNOWN INDICATION
     Dosage: 30 MINUTES AFTER BREAKFAST

REACTIONS (6)
  - Agitation [None]
  - Angina pectoris [None]
  - Arrhythmia [None]
  - Tachycardia [None]
  - Insomnia [None]
  - Nervousness [None]
